FAERS Safety Report 4841622-3 (Version None)
Quarter: 2005Q4

REPORT INFORMATION
  Report Type: 
  Country: None (occurrence: None)
  Receive Date: 20051130
  Receipt Date: 20050909
  Transmission Date: 20060501
  Serious: No
  Sender: FDA-Public Use
  Company Number: US-GLAXOSMITHKLINE-A0573592A

PATIENT
  Age: 70 Year
  Sex: Male

DRUGS (8)
  1. WELLBUTRIN XL [Suspect]
     Dosage: 150MG PER DAY
     Route: 048
     Dates: start: 20050908
  2. VITAMIN E [Concomitant]
  3. NORVASC [Concomitant]
  4. ZOCOR [Concomitant]
  5. AVAPRO [Concomitant]
  6. VALIUM [Concomitant]
  7. ADVAIR DISKUS 100/50 [Concomitant]
  8. SPIRIVA [Concomitant]

REACTIONS (2)
  - FATIGUE [None]
  - SOMNOLENCE [None]
